FAERS Safety Report 24941164 (Version 2)
Quarter: 2025Q2

REPORT INFORMATION
  Report Type: Spontaneous
  Country: FR (occurrence: FR)
  Receive Date: 20250207
  Receipt Date: 20250606
  Transmission Date: 20250716
  Serious: Yes (Death, Congenital Anomaly)
  Sender: TEVA
  Company Number: None

PATIENT

DRUGS (1)
  1. COPAXONE [Suspect]
     Active Substance: GLATIRAMER ACETATE
     Indication: Multiple sclerosis
     Dosage: COPAXONE
     Route: 064
     Dates: start: 20240303, end: 20240605

REACTIONS (5)
  - Caudal regression syndrome [Fatal]
  - Pericardial effusion [Fatal]
  - Oligohydramnios [Fatal]
  - Foetal exposure during pregnancy [Unknown]
  - Overdose [Unknown]

NARRATIVE: CASE EVENT DATE: 20240101
